FAERS Safety Report 13434101 (Version 2)
Quarter: 2017Q3

REPORT INFORMATION
  Report Type: Spontaneous
  Country: US (occurrence: US)
  Receive Date: 20170412
  Receipt Date: 20170705
  Transmission Date: 20171127
  Serious: Yes (Hospitalization)
  Sender: FDA-Public Use
  Company Number: US-NOVOPROD-539724

PATIENT
  Age: 58 Year
  Sex: Female
  Weight: 61.68 kg

DRUGS (4)
  1. NOVOLOG [Suspect]
     Active Substance: INSULIN ASPART
     Dosage: DECREASED DOSE
     Route: 058
     Dates: start: 201702
  2. NOVOLOG [Suspect]
     Active Substance: INSULIN ASPART
     Indication: TYPE 1 DIABETES MELLITUS
     Dosage: UNKNOWN
     Route: 058
     Dates: start: 2012, end: 20170120
  3. NOVOLOG [Suspect]
     Active Substance: INSULIN ASPART
     Dosage: UNKNOWN
     Route: 058
     Dates: start: 20170121, end: 20170128
  4. NOVOLOG [Suspect]
     Active Substance: INSULIN ASPART
     Dosage: INCREASED DOSE
     Route: 058
     Dates: start: 2017, end: 201702

REACTIONS (3)
  - Diabetic ketoacidosis [Recovered/Resolved]
  - Blood glucose decreased [Recovered/Resolved]
  - Colon cancer [Recovered/Resolved]

NARRATIVE: CASE EVENT DATE: 20170121
